FAERS Safety Report 4359626-6 (Version None)
Quarter: 2004Q2

REPORT INFORMATION
  Report Type: 
  Country: None (occurrence: None)
  Receive Date: 20040512
  Receipt Date: 20040430
  Transmission Date: 20050107
  Serious: Yes (Hospitalization)
  Sender: FDA-Public Use
  Company Number: DE_040413415

PATIENT
  Age: 63 Year
  Sex: Male
  Weight: 70 kg

DRUGS (8)
  1. ALIMTA [Suspect]
     Indication: PLEURAL MESOTHELIOMA
     Dosage: 500 MG /M2
     Dates: start: 20040226
  2. CISPLATIN [Suspect]
     Indication: PLEURAL MESOTHELIOMA
     Dosage: 75 MG/M2
     Dates: start: 20040226
  3. CARBIMAZOLE [Concomitant]
  4. RAMIPRIL [Concomitant]
  5. DOXEPIN HCL [Concomitant]
  6. METOPROLOL SUCCINATE [Concomitant]
  7. FOLIC ACID [Concomitant]
  8. VITAMIN B-12 [Concomitant]

REACTIONS (2)
  - ANAEMIA OF MALIGNANT DISEASE [None]
  - ARTERIAL THROMBOSIS LIMB [None]
